FAERS Safety Report 8264922-6 (Version None)
Quarter: 2012Q2

REPORT INFORMATION
  Report Type: 
  Country: None (occurrence: None)
  Receive Date: 20120406
  Receipt Date: 20120330
  Transmission Date: 20120825
  Serious: Yes (Hospitalization, Other)
  Sender: FDA-Public Use
  Company Number: MX-UCBSA-054493

PATIENT
  Age: 57 Year
  Sex: Female
  Weight: 68 kg

DRUGS (3)
  1. NUBRENZA [Suspect]
     Indication: PARKINSON'S DISEASE
     Route: 062
     Dates: start: 20120210, end: 20120211
  2. PRAMIPEXOLE DIHYDROCHLORIDE [Concomitant]
     Indication: PARKINSON'S DISEASE
     Route: 048
     Dates: start: 20100101, end: 20120211
  3. STALEVO 100 [Concomitant]
     Indication: PARKINSON'S DISEASE
     Dosage: DAILY DOSE: 400/100/12.5 MG
     Route: 048
     Dates: start: 20100101, end: 20120211

REACTIONS (5)
  - VENOUS THROMBOSIS [None]
  - SOMNOLENCE [None]
  - HEADACHE [None]
  - CEREBRAL HAEMORRHAGE [None]
  - HEMIPLEGIA [None]
